FAERS Safety Report 10246311 (Version 2)
Quarter: 2014Q3

REPORT INFORMATION
  Report Type: Spontaneous
  Country: IE (occurrence: IE)
  Receive Date: 20140619
  Receipt Date: 20140711
  Transmission Date: 20150326
  Serious: Yes (Hospitalization)
  Sender: FDA-Public Use
  Company Number: IE-AMGEN-IRLSP2014045081

PATIENT
  Age: 57 Year
  Sex: Female

DRUGS (13)
  1. VALOID                             /00014902/ [Concomitant]
     Active Substance: CYCLIZINE HYDROCHLORIDE
     Dosage: UNK
  2. EMEND [Concomitant]
     Active Substance: APREPITANT
     Dosage: UNK
  3. KIN [Concomitant]
     Dosage: UNK
  4. ZOTON [Concomitant]
     Active Substance: LANSOPRAZOLE
     Dosage: UNK
  5. DEXAMETHASONE. [Concomitant]
     Active Substance: DEXAMETHASONE
     Dosage: UNK
  6. ATIVAN [Concomitant]
     Active Substance: LORAZEPAM
     Dosage: UNK
  7. MOTILIUM [Concomitant]
     Active Substance: DOMPERIDONE
     Dosage: UNK
  8. LEXAPRO                            /01588501/ [Concomitant]
     Dosage: UNK
  9. NEULASTA [Suspect]
     Active Substance: PEGFILGRASTIM
     Indication: BREAST CANCER
     Dosage: 6MG/0.6MLS POST CHEMO EVERY TWO WEEKS
     Route: 058
     Dates: start: 20111209
  10. ZOFRAN                             /00955301/ [Concomitant]
     Active Substance: ONDANSETRON HYDROCHLORIDE
     Dosage: UNK
  11. LYRICA [Concomitant]
     Active Substance: PREGABALIN
     Dosage: UNK
  12. MYCOSTATIN [Concomitant]
     Active Substance: NYSTATIN
     Dosage: UNK
  13. AMITRIPTYLINE [Concomitant]
     Active Substance: AMITRIPTYLINE
     Dosage: UNK

REACTIONS (1)
  - Gastrointestinal scan [Unknown]

NARRATIVE: CASE EVENT DATE: 201406
